APPROVED DRUG PRODUCT: CLARITHROMYCIN
Active Ingredient: CLARITHROMYCIN
Strength: 250MG
Dosage Form/Route: TABLET;ORAL
Application: A065155 | Product #001
Applicant: TEVA PHARMACEUTICALS USA INC
Approved: May 31, 2005 | RLD: No | RS: No | Type: DISCN